FAERS Safety Report 4524816-6 (Version None)
Quarter: 2004Q4

REPORT INFORMATION
  Report Type: 
  Country: None (occurrence: None)
  Receive Date: 20041209
  Receipt Date: 20041209
  Transmission Date: 20050328
  Serious: Yes (Hospitalization)
  Sender: FDA-Public Use
  Company Number: None

PATIENT
  Age: 43 Year
  Sex: Male
  Weight: 87.0906 kg

DRUGS (15)
  1. CLOZAPINE [Suspect]
     Indication: SCHIZOPHRENIA, PARANOID TYPE
     Dosage: 50MG  QAM  ORAL
     Route: 048
     Dates: start: 20040916, end: 20041109
  2. CLOZAPINE [Suspect]
     Indication: SCHIZOPHRENIA, PARANOID TYPE
     Dosage: 300 MG QHS ORAL
     Route: 048
     Dates: start: 20040827, end: 20041208
  3. DEPAKOTE [Concomitant]
  4. DOCUSATE NA [Concomitant]
  5. FOLIC ACID [Concomitant]
  6. FLUVOXAMINE [Concomitant]
  7. TRAZODONE [Concomitant]
  8. BISACODYL [Concomitant]
  9. IBUPROFEN [Concomitant]
  10. ALUMINUM HYDROXIDE AND MAGNESIUM TRISILICATE [Concomitant]
  11. OMEPRAZOLE [Concomitant]
  12. APAP TAB [Concomitant]
  13. DOCUSATE NA [Concomitant]
  14. LORAZEPAM [Concomitant]
  15. MOM [Concomitant]

REACTIONS (1)
  - FAECALOMA [None]
